FAERS Safety Report 12939690 (Version 1)
Quarter: 2016Q4

REPORT INFORMATION
  Report Type: Spontaneous
  Country: US (occurrence: US)
  Receive Date: 20161115
  Receipt Date: 20161115
  Transmission Date: 20170207
  Serious: No
  Sender: FDA-Public Use
  Company Number: US-BAYER-2016-218063

PATIENT
  Age: 86 Year
  Sex: Female
  Weight: 62.13 kg

DRUGS (1)
  1. MIRALAX [Suspect]
     Active Substance: POLYETHYLENE GLYCOL 3350
     Dosage: TOOK 2 PARTIAL DOSES
     Dates: start: 20161110, end: 20161111

REACTIONS (3)
  - Underdose [None]
  - Product use issue [None]
  - Product expiration date issue [None]

NARRATIVE: CASE EVENT DATE: 20161110
